FAERS Safety Report 19164746 (Version 1)
Quarter: 2021Q2

REPORT INFORMATION
  Report Type: Spontaneous
  Country: US (occurrence: US)
  Receive Date: 20210421
  Receipt Date: 20210421
  Transmission Date: 20210717
  Serious: No
  Sender: FDA-Public Use
  Company Number: US-CELGENEUS-USA-20210402830

PATIENT

DRUGS (1)
  1. REBLOZYL [Suspect]
     Active Substance: LUSPATERCEPT-AAMT
     Indication: THALASSAEMIA BETA
     Dosage: 1 OR 1.25 MG
     Route: 058

REACTIONS (2)
  - Fatigue [Not Recovered/Not Resolved]
  - Red blood cell count increased [Not Recovered/Not Resolved]
